FAERS Safety Report 19198809 (Version 1)
Quarter: 2021Q2

REPORT INFORMATION
  Report Type: Spontaneous
  Country: US (occurrence: US)
  Receive Date: 20210429
  Receipt Date: 20210429
  Transmission Date: 20210717
  Serious: No
  Sender: FDA-Public Use
  Company Number: US-ROCHE-2729948

PATIENT
  Age: 58 Year
  Sex: Female
  Weight: 63.56 kg

DRUGS (6)
  1. CALCIUM [Concomitant]
     Active Substance: CALCIUM
     Indication: UNEVALUABLE EVENT
  2. KADCYLA [Suspect]
     Active Substance: ADO-TRASTUZUMAB EMTANSINE
     Route: 042
     Dates: start: 20201203
  3. MAGNESIUM [Concomitant]
     Active Substance: MAGNESIUM
     Dosage: AS SUPPLEMENT
     Dates: start: 202007
  4. LETROZOLE. [Concomitant]
     Active Substance: LETROZOLE
     Dosage: 1 CYCLE
     Route: 048
     Dates: end: 202007
  5. LETROZOLE. [Concomitant]
     Active Substance: LETROZOLE
     Route: 048
     Dates: start: 20201115
  6. KADCYLA [Suspect]
     Active Substance: ADO-TRASTUZUMAB EMTANSINE
     Indication: HER2 POSITIVE BREAST CANCER
     Dosage: THROUGH PORT A CATH
     Route: 042
     Dates: start: 20201112

REACTIONS (1)
  - Neuropathy peripheral [Not Recovered/Not Resolved]

NARRATIVE: CASE EVENT DATE: 20201123
